FAERS Safety Report 19639864 (Version 1)
Quarter: 2021Q3

REPORT INFORMATION
  Report Type: Spontaneous
  Country: GB (occurrence: GB)
  Receive Date: 20210730
  Receipt Date: 20210730
  Transmission Date: 20211014
  Serious: Yes (Other)
  Sender: FDA-Public Use
  Company Number: GB-MYLANLABS-2021M1045718

PATIENT
  Age: 71 Year
  Sex: Male
  Weight: 86 kg

DRUGS (13)
  1. SYMBICORT [Concomitant]
     Active Substance: BUDESONIDE\FORMOTEROL FUMARATE DIHYDRATE
     Indication: ILL-DEFINED DISORDER
     Dosage: UNK, PRN,USE AS DIRECTED
     Dates: start: 20200221
  2. SODIUM CROMOGLICATE [Concomitant]
     Active Substance: CROMOLYN SODIUM
     Indication: ILL-DEFINED DISORDER
     Dosage: 1 DROP, QID,ONE DROP 4 TIMES/DAY
     Dates: start: 20210111
  3. VENTOLIN [Concomitant]
     Active Substance: ALBUTEROL SULFATE
     Indication: ILL-DEFINED DISORDER
     Dosage: 2 DOSAGE FORM, PRN,INHALE 2 DOSES AS NEEDED
     Dates: start: 20200221
  4. OMEPRAZOLE. [Concomitant]
     Active Substance: OMEPRAZOLE
     Indication: ILL-DEFINED DISORDER
     Dosage: UNK UNK, QD,TAKE ONE DAILY
     Dates: start: 20200221
  5. SIMVASTATIN. [Concomitant]
     Active Substance: SIMVASTATIN
     Indication: ILL-DEFINED DISORDER
     Dosage: 1 DOSAGE FORM, QD,TAKE ONE AT NIGHT
     Dates: start: 20210111
  6. BETNOVATE [Concomitant]
     Active Substance: BETAMETHASONE
     Indication: ILL-DEFINED DISORDER
     Dosage: UNK UNK, BID,APPLY TWICE A DAY
     Dates: start: 20210111
  7. AZELASTINE. [Concomitant]
     Active Substance: AZELASTINE HYDROCHLORIDE
     Indication: ILL-DEFINED DISORDER
     Dosage: 1 DROP, BID,APPLY ONE DROP INTO THE EYE(S) TWICE DAILY
     Dates: start: 20210607, end: 20210705
  8. LYMECYCLINE [Concomitant]
     Active Substance: LYMECYCLINE
     Indication: ILL-DEFINED DISORDER
     Dosage: 1 DOSAGE FORM, QD, 1 DAILY
     Dates: start: 20200221, end: 20210423
  9. RAMIPRIL. [Concomitant]
     Active Substance: RAMIPRIL
     Indication: ILL-DEFINED DISORDER
     Dosage: 1 DOSAGE FORM, QD,ONE CAPSULE TO BE TAKEN ONCE A DAY TO REDUCE B...
     Dates: start: 20210111
  10. FLUTICASONE FUROATE [Concomitant]
     Active Substance: FLUTICASONE FUROATE
     Indication: ILL-DEFINED DISORDER
     Dosage: UNK UNK, QD, ONE TO TWO SPRAYS IN TO EACH NOSTRIL ONCE A DAY
     Route: 045
     Dates: start: 20210607, end: 20210705
  11. APIXABAN [Suspect]
     Active Substance: APIXABAN
     Indication: ILL-DEFINED DISORDER
     Dosage: 40 MILLIGRAM
     Dates: start: 20210712
  12. TERBINAFINE. [Concomitant]
     Active Substance: TERBINAFINE
     Indication: ILL-DEFINED DISORDER
     Dosage: UNK UNK, QD,APPLY THINLY 1?2 TIMES DAILY FOR 1?2 WEEKS
     Dates: start: 20210111
  13. RIVAROXABAN [Concomitant]
     Active Substance: RIVAROXABAN
     Indication: ILL-DEFINED DISORDER
     Dosage: 1 DOSAGE FORM, QD,ONE TABLET TO BE TAKEN ONCE A DAY WITH FOOD TO ...
     Dates: start: 20210712

REACTIONS (5)
  - Fatigue [Recovering/Resolving]
  - Feeling of body temperature change [Recovering/Resolving]
  - Dizziness [Recovering/Resolving]
  - Syncope [Recovering/Resolving]
  - Nausea [Recovering/Resolving]

NARRATIVE: CASE EVENT DATE: 20210712
